FAERS Safety Report 9012057 (Version 1)
Quarter: 2012Q4

REPORT INFORMATION
  Report Type: Spontaneous
  Country: DK (occurrence: None)
  Receive Date: 20121228
  Receipt Date: 20121228
  Transmission Date: 20130627
  Serious: Yes (Disabling, Other)
  Sender: FDA-Public Use
  Company Number: 2012MA014312

PATIENT
  Age: 52 Year
  Sex: Male

DRUGS (4)
  1. CITALOPRAM [Suspect]
     Indication: DEPRESSION
     Route: 048
     Dates: start: 20110406, end: 20110429
  2. FLUOXETINE [Suspect]
     Indication: DEPRESSION
     Route: 048
     Dates: start: 20110509, end: 20110527
  3. MIRTAZAPINE [Suspect]
     Indication: DEPRESSION
     Route: 048
     Dates: start: 20110610, end: 20110610
  4. IBUPROFEN [Concomitant]

REACTIONS (6)
  - Nausea [None]
  - Abdominal pain [None]
  - Locked-in syndrome [None]
  - Muscle twitching [None]
  - Toxicity to various agents [None]
  - Hypersomnia [None]
